FAERS Safety Report 6112574-3 (Version None)
Quarter: 2009Q1

REPORT INFORMATION
  Report Type: 
  Country: None (occurrence: None)
  Receive Date: 20090310
  Receipt Date: 20090223
  Transmission Date: 20090719
  Serious: Yes (Other)
  Sender: FDA-Public Use
  Company Number: 2009000279

PATIENT
  Age: 71 Year
  Sex: Female

DRUGS (3)
  1. TARCEVA [Suspect]
     Indication: BRONCHIAL NEOPLASM
     Dosage: (150 MG), ORAL
     Route: 048
     Dates: start: 20081129
  2. DOXYCYCLINE [Concomitant]
  3. VIBRAMYCIN 9DOXYCYCLINE HYCLATE) [Concomitant]

REACTIONS (6)
  - ANOREXIA [None]
  - DYSGEUSIA [None]
  - INTRACRANIAL PRESSURE INCREASED [None]
  - NAUSEA [None]
  - PAROSMIA [None]
  - VOMITING [None]
